FAERS Safety Report 5892313-1 (Version None)
Quarter: 2008Q3

REPORT INFORMATION
  Report Type: 
  Country: None (occurrence: None)
  Receive Date: 20080922
  Receipt Date: 20080910
  Transmission Date: 20090109
  Serious: Yes (Hospitalization)
  Sender: FDA-Public Use
  Company Number: FR-JNJCH-2008024361

PATIENT
  Sex: Female

DRUGS (5)
  1. CETIRIZINE HYDROCHLORIDE [Suspect]
     Route: 048
  2. CIPROFLOXACIN [Suspect]
     Indication: HELICOBACTER GASTRITIS
     Dosage: TEXT:NI
     Route: 048
     Dates: start: 20080219, end: 20080225
  3. PANTOPRAZOLE SODIUM [Concomitant]
     Indication: GASTROOESOPHAGEAL REFLUX DISEASE
     Route: 048
  4. AMOXICILLIN [Concomitant]
     Indication: HELICOBACTER GASTRITIS
     Route: 048
     Dates: start: 20080219, end: 20080225
  5. INDORAMIN [Concomitant]
     Dosage: TEXT:50 MG
     Route: 048

REACTIONS (5)
  - ASTHENIA [None]
  - HEADACHE [None]
  - MUSCULOSKELETAL PAIN [None]
  - MYALGIA [None]
  - TENDONITIS [None]
